FAERS Safety Report 6107928-5 (Version None)
Quarter: 2009Q1

REPORT INFORMATION
  Report Type: 
  Country: None (occurrence: None)
  Receive Date: 20090305
  Receipt Date: 20090305
  Transmission Date: 20090719
  Serious: No
  Sender: FDA-Public Use
  Company Number: None

PATIENT
  Age: 62 Year
  Sex: Male
  Weight: 66.6788 kg

DRUGS (1)
  1. ZEGERID [Suspect]
     Indication: DYSPEPSIA
     Dosage: 40-1100 BID PO
     Route: 048
     Dates: start: 20090225, end: 20090303

REACTIONS (3)
  - ERYTHEMA [None]
  - NOCTURIA [None]
  - PARAESTHESIA [None]
